FAERS Safety Report 17193542 (Version 1)
Quarter: 2019Q4

REPORT INFORMATION
  Report Type: Spontaneous
  Country: US (occurrence: US)
  Receive Date: 20191223
  Receipt Date: 20191223
  Transmission Date: 20200122
  Serious: No
  Sender: FDA-Public Use
  Company Number: US-KVK-TECH, INC-2078117

PATIENT
  Sex: Female

DRUGS (1)
  1. OXYCODONE HYDROCHLORIDE. [Suspect]
     Active Substance: OXYCODONE HYDROCHLORIDE
     Indication: PAIN
     Route: 065

REACTIONS (5)
  - Headache [Unknown]
  - Abdominal pain upper [Unknown]
  - Tremor [Unknown]
  - Drug ineffective [Unknown]
  - Nausea [Unknown]
